FAERS Safety Report 4988575-5 (Version None)
Quarter: 2006Q2

REPORT INFORMATION
  Report Type: 
  Country: None (occurrence: None)
  Receive Date: 20060502
  Receipt Date: 20060421
  Transmission Date: 20061013
  Serious: Yes (Death)
  Sender: FDA-Public Use
  Company Number: CN-JNJFOC-20060404406

PATIENT
  Age: 50 Year

DRUGS (1)
  1. SPORANOX [Suspect]
     Indication: FUNGAL INFECTION
     Route: 042
     Dates: start: 20060417

REACTIONS (4)
  - CYANOSIS [None]
  - DEATH [None]
  - DYSPNOEA [None]
  - SALIVARY HYPERSECRETION [None]
